FAERS Safety Report 7963955-4 (Version None)
Quarter: 2011Q4

REPORT INFORMATION
  Report Type: 
  Country: None (occurrence: None)
  Receive Date: 20111208
  Receipt Date: 20110816
  Transmission Date: 20120403
  Serious: No
  Sender: FDA-Public Use
  Company Number: US-BAYER-2011-073336

PATIENT
  Sex: Male

DRUGS (1)
  1. CIPROFLOXACIN [Suspect]

REACTIONS (2)
  - NERVE INJURY [None]
  - DIARRHOEA [None]
